FAERS Safety Report 19458624 (Version 1)
Quarter: 2021Q2

REPORT INFORMATION
  Report Type: Report from Study
  Country: AR (occurrence: AR)
  Receive Date: 20210624
  Receipt Date: 20210624
  Transmission Date: 20210717
  Serious: Yes (Other)
  Sender: FDA-Public Use
  Company Number: PHHY2018AR050786

PATIENT
  Age: 49 Year
  Sex: Female

DRUGS (3)
  1. COSENTYX [Suspect]
     Active Substance: SECUKINUMAB
     Indication: PSORIATIC ARTHROPATHY
     Dosage: 1 DF, QW
     Route: 065
  2. COSENTYX [Suspect]
     Active Substance: SECUKINUMAB
     Dosage: 300 MG, QMO
     Route: 058
  3. COSENTYX [Suspect]
     Active Substance: SECUKINUMAB
     Indication: PSORIASIS
     Dosage: 300 MG, QMO
     Route: 058
     Dates: start: 20171001

REACTIONS (21)
  - Drug ineffective [Unknown]
  - Swelling [Unknown]
  - Memory impairment [Not Recovered/Not Resolved]
  - Spinal pain [Unknown]
  - Bursitis [Unknown]
  - Arthralgia [Unknown]
  - Fatigue [Unknown]
  - Off label use [Unknown]
  - Gait disturbance [Unknown]
  - Abdominal discomfort [Unknown]
  - Inflammation [Unknown]
  - Fibromyalgia [Unknown]
  - Pain [Unknown]
  - Infection [Unknown]
  - Arthritis [Unknown]
  - Paraesthesia [Unknown]
  - Discomfort [Unknown]
  - Product dose omission issue [Unknown]
  - Product distribution issue [Unknown]
  - Psoriatic arthropathy [Unknown]
  - Malaise [Unknown]

NARRATIVE: CASE EVENT DATE: 20210301
